FAERS Safety Report 9437250 (Version 1)
Quarter: 2013Q3

REPORT INFORMATION
  Report Type: Spontaneous
  Country: BR (occurrence: BR)
  Receive Date: 20130802
  Receipt Date: 20130802
  Transmission Date: 20140515
  Serious: Yes (Death, Other)
  Sender: FDA-Public Use
  Company Number: PHHY2013BR044866

PATIENT
  Sex: 0

DRUGS (2)
  1. AFINITOR [Suspect]
  2. EXEMESTANE [Suspect]

REACTIONS (2)
  - Death [Fatal]
  - Rash [Unknown]
